FAERS Safety Report 23761129 (Version 1)
Quarter: 2024Q2

REPORT INFORMATION
  Report Type: Other
  Country: DE (occurrence: None)
  Receive Date: 20240419
  Receipt Date: 20240419
  Transmission Date: 20240716
  Serious: Yes (Other)
  Sender: FDA-Public Use
  Company Number: DE-ROCHE-3546939

PATIENT

DRUGS (9)
  1. ATEZOLIZUMAB [Suspect]
     Active Substance: ATEZOLIZUMAB
     Indication: Malignant melanoma
     Route: 065
  2. VEMURAFENIB [Suspect]
     Active Substance: VEMURAFENIB
     Indication: Malignant melanoma
     Route: 065
  3. COBIMETINIB [Suspect]
     Active Substance: COBIMETINIB
     Indication: Malignant melanoma
     Route: 065
  4. NIVOLUMAB [Suspect]
     Active Substance: NIVOLUMAB
     Indication: Malignant melanoma
     Route: 065
  5. PEMBROLIZUMAB [Suspect]
     Active Substance: PEMBROLIZUMAB
     Indication: Malignant melanoma
     Route: 065
  6. DABRAFENIB [Suspect]
     Active Substance: DABRAFENIB
     Indication: Malignant melanoma
     Route: 065
  7. TRAMETINIB [Suspect]
     Active Substance: TRAMETINIB
     Indication: Malignant melanoma
     Route: 065
  8. ENCORAFENIB [Suspect]
     Active Substance: ENCORAFENIB
     Indication: Malignant melanoma
     Route: 065
  9. BINIMETINIB [Suspect]
     Active Substance: BINIMETINIB
     Indication: Malignant melanoma
     Route: 065

REACTIONS (17)
  - Pancreatitis [Unknown]
  - Colitis [Unknown]
  - Cytokine release syndrome [Unknown]
  - Hepatitis [Unknown]
  - Meningitis aseptic [Unknown]
  - Pemphigoid [Unknown]
  - Hypophysitis [Unknown]
  - Renal failure [Unknown]
  - Pneumonitis [Unknown]
  - Gastritis [Unknown]
  - Nausea [Unknown]
  - Pyrexia [Unknown]
  - Arthritis [Unknown]
  - Thyroiditis [Unknown]
  - Blood creatine phosphokinase increased [Unknown]
  - Paraesthesia [Unknown]
  - Sarcoid-like reaction [Unknown]
